FAERS Safety Report 10391102 (Version 1)
Quarter: 2014Q3

REPORT INFORMATION
  Report Type: Report from Study
  Country: BR (occurrence: BR)
  Receive Date: 20140818
  Receipt Date: 20140818
  Transmission Date: 20150326
  Serious: Yes (Hospitalization)
  Sender: FDA-Public Use
  Company Number: BR-GLAXOSMITHKLINE-A1085290A

PATIENT
  Age: 36 Year
  Sex: Female
  Weight: 85 kg

DRUGS (5)
  1. MONTELUKAST SODIUM. [Concomitant]
     Active Substance: MONTELUKAST SODIUM
     Indication: RHINITIS
     Dosage: 1TAB PER DAY
  2. ESOMEPRAZOLE [Concomitant]
     Active Substance: ESOMEPRAZOLE
     Indication: ILL-DEFINED DISORDER
     Dosage: 1TAB PER DAY
  3. AVAMYS [Concomitant]
     Active Substance: FLUTICASONE FUROATE
     Indication: RHINITIS
     Dosage: 4SPR PER DAY
     Dates: start: 20140809
  4. AEROLIN [Concomitant]
     Active Substance: ALBUTEROL
     Indication: ASTHMATIC CRISIS
  5. SERETIDE [Suspect]
     Active Substance: FLUTICASONE FUROATE\SALMETEROL XINAFOATE
     Indication: ASTHMA
     Route: 055
     Dates: start: 2010

REACTIONS (1)
  - Asthmatic crisis [Recovered/Resolved]

NARRATIVE: CASE EVENT DATE: 20140807
